FAERS Safety Report 6639991-7 (Version None)
Quarter: 2010Q1

REPORT INFORMATION
  Report Type: 
  Country: None (occurrence: None)
  Receive Date: 20100318
  Receipt Date: 20100305
  Transmission Date: 20100710
  Serious: Yes (Disabling)
  Sender: FDA-Public Use
  Company Number: PHEH2010US01597

PATIENT
  Sex: Male
  Weight: 68.9 kg

DRUGS (14)
  1. EXJADE [Suspect]
     Indication: IRON METABOLISM DISORDER
     Dosage: 1250 MG, DAILY
     Route: 048
     Dates: start: 20100110
  2. EXJADE [Suspect]
     Indication: IRON OVERLOAD
  3. VIDAZA [Concomitant]
     Indication: MYELODYSPLASTIC SYNDROME
     Dosage: UNK, UNK
     Route: 065
  4. VIDAZA [Concomitant]
     Indication: MULTIPLE MYELOMA
  5. TYLENOL (CAPLET) [Concomitant]
     Dosage: 650 MG, PRN
     Route: 048
  6. CENTRUM SILVER [Concomitant]
     Dosage: UNK, ONE TIME ONLY
     Route: 048
  7. EPOETIN ALFA [Concomitant]
     Dosage: 40000 U, QW
     Route: 058
  8. ZINC [Concomitant]
     Dosage: 50 MG, ONE TIME ONLY
     Route: 048
  9. FUROSEMIDE [Concomitant]
     Dosage: 40 MG, ONE TIME ONLY
     Route: 048
  10. DEFERASIROX [Concomitant]
     Dosage: UNK, UNK
     Route: 065
  11. OMEPRAZOLE [Concomitant]
     Dosage: 20 MG, BID
     Route: 048
  12. METOPROLOL TARTRATE [Concomitant]
     Dosage: 25 MG, BID
     Route: 048
  13. BISACODYL [Concomitant]
     Dosage: 5 MG, ONE TIME ONLY
     Route: 048
  14. HYDROCODONE BITARTRATE AND ACETAMINOPHEN [Concomitant]
     Dosage: 5/500, AS NEEDED
     Route: 048

REACTIONS (21)
  - BILIRUBIN CONJUGATED INCREASED [None]
  - BLOOD ALBUMIN DECREASED [None]
  - BLOOD CALCIUM DECREASED [None]
  - BLOOD CREATININE INCREASED [None]
  - BLOOD GLUCOSE INCREASED [None]
  - BLOOD LACTATE DEHYDROGENASE INCREASED [None]
  - BLOOD PRESSURE DECREASED [None]
  - BLOOD PRESSURE SYSTOLIC INCREASED [None]
  - BLOOD SODIUM DECREASED [None]
  - BLOOD UREA INCREASED [None]
  - DECREASED APPETITE [None]
  - DIARRHOEA [None]
  - FATIGUE [None]
  - GLOMERULAR FILTRATION RATE DECREASED [None]
  - HEART RATE INCREASED [None]
  - NEUTROPHIL COUNT DECREASED [None]
  - NEUTROPHIL PERCENTAGE INCREASED [None]
  - OEDEMA PERIPHERAL [None]
  - PROTEIN TOTAL DECREASED [None]
  - SOMNOLENCE [None]
  - WHITE BLOOD CELL COUNT DECREASED [None]
